FAERS Safety Report 18082947 (Version 1)
Quarter: 2020Q3

REPORT INFORMATION
  Report Type: Spontaneous
  Country: UG (occurrence: UG)
  Receive Date: 20200729
  Receipt Date: 20200729
  Transmission Date: 20201103
  Serious: Yes (Death, Hospitalization)
  Sender: FDA-Public Use
  Company Number: UG-TAKEDA-2020TUS032330

PATIENT
  Sex: Male

DRUGS (1)
  1. ICLUSIG [Suspect]
     Active Substance: PONATINIB
     Indication: CHRONIC MYELOID LEUKAEMIA
     Dosage: 45 MILLIGRAM
     Route: 065

REACTIONS (2)
  - Death [Fatal]
  - White blood cell count increased [Unknown]
